APPROVED DRUG PRODUCT: IMKELDI
Active Ingredient: IMATINIB MESYLATE
Strength: EQ 80MG BASE/ML
Dosage Form/Route: SOLUTION;ORAL
Application: N219097 | Product #001
Applicant: SHORLA ONCOLOGY
Approved: Nov 22, 2024 | RLD: Yes | RS: Yes | Type: RX

PATENTS:
Patent 11957681 | Expires: Apr 27, 2040